FAERS Safety Report 9333453 (Version 2)
Quarter: 2013Q2

REPORT INFORMATION
  Report Type: Spontaneous
  Country: US (occurrence: None)
  Receive Date: 20130604
  Receipt Date: 20130612
  Transmission Date: 20140414
  Serious: Yes (Disabling, Other)
  Sender: FDA-Public Use
  Company Number: ACO_36460_2013

PATIENT
  Sex: Male
  Weight: 64.4 kg

DRUGS (8)
  1. AMPYRA [Suspect]
     Indication: GAIT DISTURBANCE
     Route: 048
     Dates: start: 201105, end: 201107
  2. AMPYRA [Suspect]
     Indication: MULTIPLE SCLEROSIS
     Route: 048
     Dates: start: 201105, end: 201107
  3. AMPYRA [Suspect]
     Indication: SPEECH DISORDER
     Route: 048
     Dates: start: 201105, end: 201107
  4. AMPYRA [Suspect]
     Indication: MULTIPLE SCLEROSIS
     Route: 048
     Dates: start: 201105, end: 201107
  5. MULTIVITAMIN (VITAMINS NOS) [Concomitant]
  6. ZOCOR (SIMVASTATIN) [Concomitant]
  7. METOPROLOL (METOPROLOL TARTRATE) [Concomitant]
  8. PROTONIX (PANTOPRAZOLE SODIUM SESQUIHYDRATE) [Concomitant]

REACTIONS (6)
  - Abasia [None]
  - Dysarthria [None]
  - Condition aggravated [None]
  - Walking aid user [None]
  - Walking aid user [None]
  - Multiple sclerosis [None]
